APPROVED DRUG PRODUCT: QUESTRAN
Active Ingredient: CHOLESTYRAMINE
Strength: EQ 4GM RESIN/PACKET **Federal Register determination that product was not discontinued or withdrawn for safety or effectiveness reasons**
Dosage Form/Route: POWDER;ORAL
Application: N016640 | Product #001
Applicant: BRISTOL MYERS CO
Approved: Approved Prior to Jan 1, 1982 | RLD: Yes | RS: No | Type: DISCN